FAERS Safety Report 6183127-6 (Version None)
Quarter: 2009Q2

REPORT INFORMATION
  Report Type: 
  Country: None (occurrence: None)
  Receive Date: 20090506
  Receipt Date: 20090504
  Transmission Date: 20091009
  Serious: Yes (Death, Hospitalization)
  Sender: FDA-Public Use
  Company Number: 2009SP006515

PATIENT
  Age: 64 Year
  Sex: Male
  Weight: 81 kg

DRUGS (3)
  1. VIRAFERONPEG [Suspect]
     Indication: HEPATITIS C
     Dosage: 45 MCG/KG;QW;SC
     Route: 058
     Dates: start: 20060913, end: 20070530
  2. PLACEBO (PLACEBO) [Suspect]
     Indication: HEPATITIS C
     Dosage: 1000 MG;QD;PO
     Route: 048
     Dates: start: 20060913, end: 20070531
  3. XANAX [Suspect]
     Indication: INSOMNIA
     Dosage: 0.25 MG;QD;PO
     Route: 048
     Dates: start: 20081020, end: 20081022

REACTIONS (19)
  - AGITATION [None]
  - ASCITES [None]
  - CONFUSIONAL STATE [None]
  - DISEASE PROGRESSION [None]
  - GASTROINTESTINAL HAEMORRHAGE [None]
  - GYNAECOMASTIA [None]
  - HEPATIC CIRRHOSIS [None]
  - HEPATIC ENCEPHALOPATHY [None]
  - HEPATIC FIBROSIS [None]
  - HYPONATRAEMIA [None]
  - INSOMNIA [None]
  - PERITONEAL INFECTION [None]
  - PORTAL HYPERTENSION [None]
  - RESPIRATORY DISORDER [None]
  - SOMNOLENCE [None]
  - SPLENOMEGALY [None]
  - SUDDEN DEATH [None]
  - THROMBOCYTOPENIA [None]
  - VARICES OESOPHAGEAL [None]
